FAERS Safety Report 8029363 (Version 2)
Quarter: 2013Q2

REPORT INFORMATION
  Report Type: Spontaneous
  Country: US (occurrence: None)
  Receive Date: 20110531
  Receipt Date: 20120524
  Transmission Date: 20140414
  Serious: Yes (Life-Threatening, Other)
  Sender: FDA-Public Use
  Company Number: WAES 1103USA02579

PATIENT
  Age: 45 Year
  Sex: Male
  Weight: 155.13 kg

DRUGS (4)
  1. JANUMET [Suspect]
     Indication: TYPE 2 DIABETES MELLITUS
     Route: 048
     Dates: start: 20110224, end: 20110314
  2. SAVELLA [Concomitant]
  3. METFORMIN HYDROCHLORIDE [Concomitant]
  4. PREDNISONE [Concomitant]

REACTIONS (1)
  - STEVENS-JOHNSON SYNDROME [None]
